FAERS Safety Report 6993866-2 (Version None)
Quarter: 2010Q3

REPORT INFORMATION
  Report Type: 
  Country: None (occurrence: None)
  Receive Date: 20100917
  Receipt Date: 20100311
  Transmission Date: 20110219
  Serious: Yes (Hospitalization)
  Sender: FDA-Public Use
  Company Number: US-ASTRAZENECA-2008UW06945

PATIENT
  Age: 49 Year
  Sex: Female
  Weight: 81.6 kg

DRUGS (11)
  1. SEROQUEL [Suspect]
     Indication: SLEEP DISORDER
     Route: 048
     Dates: start: 20010101
  2. SEROQUEL [Suspect]
     Dosage: 25 MG, 200 MG DISPENSED
     Route: 048
     Dates: start: 20020903
  3. RISPERDAL [Concomitant]
     Dates: start: 20020711
  4. THORAZINE [Concomitant]
  5. DEPAKOTE [Concomitant]
  6. FUROSEMIDE [Concomitant]
     Dates: start: 20020711
  7. ZOCOR [Concomitant]
     Dates: start: 20020801
  8. LORAZEPAM [Concomitant]
     Dates: start: 20020802
  9. ANANTADINE [Concomitant]
     Dates: start: 20020805
  10. SYNTHROID [Concomitant]
     Dosage: 125 MCG DISPENSED
     Dates: start: 20020912
  11. DIAMOX SRC [Concomitant]
     Dates: start: 20030902

REACTIONS (3)
  - DIABETES MELLITUS [None]
  - TYPE 1 DIABETES MELLITUS [None]
  - TYPE 2 DIABETES MELLITUS [None]
